FAERS Safety Report 5971253-3 (Version None)
Quarter: 2008Q4

REPORT INFORMATION
  Report Type: 
  Country: None (occurrence: None)
  Receive Date: 20081128
  Receipt Date: 20081126
  Transmission Date: 20090506
  Serious: Yes (Hospitalization)
  Sender: FDA-Public Use
  Company Number: US-PFIZER INC-2005045672

PATIENT
  Sex: Female
  Weight: 73.9 kg

DRUGS (18)
  1. SUTENT [Suspect]
     Indication: METASTATIC RENAL CELL CARCINOMA
     Route: 048
     Dates: start: 20041102, end: 20050220
  2. LEXAPRO [Concomitant]
     Route: 048
     Dates: start: 20020101
  3. LORAZEPAM [Concomitant]
     Route: 048
     Dates: start: 19970101
  4. MORPHINE [Concomitant]
     Route: 048
     Dates: start: 20041029
  5. ATIVAN [Concomitant]
     Route: 048
     Dates: start: 20041001
  6. VICODIN [Concomitant]
     Route: 048
     Dates: start: 20041001
  7. COMPAZINE [Concomitant]
     Route: 048
     Dates: start: 20041115
  8. REGLAN [Concomitant]
     Route: 048
     Dates: start: 20041130
  9. PRILOSEC [Concomitant]
     Route: 048
     Dates: start: 20041210
  10. ATENOLOL [Concomitant]
     Route: 048
     Dates: start: 20041217
  11. GLUCOSAMINE W/CHONDROITIN SULFATES [Concomitant]
     Route: 048
     Dates: start: 20050126
  12. DILAUDID [Concomitant]
     Route: 048
     Dates: start: 20050127
  13. ZOFRAN [Concomitant]
     Route: 048
     Dates: start: 20050222
  14. KYTRIL [Concomitant]
     Route: 048
     Dates: start: 20050222
  15. HYDROCHLOROTHIAZIDE [Concomitant]
     Route: 048
     Dates: start: 20050301, end: 20050307
  16. K-DUR [Concomitant]
     Route: 048
     Dates: start: 20050301, end: 20050307
  17. IMODIUM [Concomitant]
     Route: 048
     Dates: start: 20050228, end: 20050303
  18. LEVAQUIN [Concomitant]
     Indication: PROPHYLAXIS
     Route: 048
     Dates: start: 20050310, end: 20050317

REACTIONS (1)
  - PLEURAL EFFUSION [None]
